FAERS Safety Report 10553828 (Version 3)
Quarter: 2014Q4

REPORT INFORMATION
  Report Type: Report from Study
  Country: CA (occurrence: CA)
  Receive Date: 20141030
  Receipt Date: 20141104
  Transmission Date: 20150529
  Serious: Yes (Other)
  Sender: FDA-Public Use
  Company Number: CA-BAYER-2014-107399

PATIENT
  Age: 39 Year
  Sex: Female

DRUGS (7)
  1. BETASERON [Suspect]
     Active Substance: INTERFERON BETA-1B
     Indication: MULTIPLE SCLEROSIS
     Dosage: 0.25 MG, UNK
     Dates: end: 20141020
  2. CETIRIZINE [Concomitant]
     Active Substance: CETIRIZINE HYDROCHLORIDE
     Dosage: UNK UNK, QOD
  3. BETASERON [Suspect]
     Active Substance: INTERFERON BETA-1B
     Indication: MULTIPLE SCLEROSIS
     Dosage: 0.1875 MG
  4. TYLENOL [Concomitant]
     Active Substance: ACETAMINOPHEN
     Dosage: UNK UNK, QOD
  5. FLUCONAZOLE. [Concomitant]
     Active Substance: FLUCONAZOLE
     Dosage: 150 MG, Q1MON
  6. BETASERON [Suspect]
     Active Substance: INTERFERON BETA-1B
     Indication: MULTIPLE SCLEROSIS
     Dosage: 0.062 MG, UNK
     Dates: start: 20140714
  7. BETASERON [Suspect]
     Active Substance: INTERFERON BETA-1B
     Indication: MULTIPLE SCLEROSIS
     Dosage: 0.25 MG, UNK

REACTIONS (37)
  - Pain of skin [None]
  - Oral herpes [Not Recovered/Not Resolved]
  - Hypoaesthesia [Unknown]
  - Peripheral swelling [Unknown]
  - Menorrhagia [Not Recovered/Not Resolved]
  - Pyrexia [Not Recovered/Not Resolved]
  - Nausea [Recovered/Resolved]
  - Limb discomfort [Unknown]
  - Body temperature decreased [Not Recovered/Not Resolved]
  - Feeling cold [Recovered/Resolved]
  - Acne [Not Recovered/Not Resolved]
  - Fatigue [Not Recovered/Not Resolved]
  - Arthralgia [Not Recovered/Not Resolved]
  - Injection site hypersensitivity [Not Recovered/Not Resolved]
  - Pain of skin [Not Recovered/Not Resolved]
  - Chills [Not Recovered/Not Resolved]
  - Feeling hot [Recovered/Resolved]
  - Hormone level abnormal [Not Recovered/Not Resolved]
  - Urinary incontinence [Not Recovered/Not Resolved]
  - Multiple sclerosis relapse [Not Recovered/Not Resolved]
  - Palpitations [Recovering/Resolving]
  - Pain [Not Recovered/Not Resolved]
  - Influenza like illness [None]
  - Palpitations [None]
  - Menstruation irregular [Not Recovered/Not Resolved]
  - Visual acuity reduced [Not Recovered/Not Resolved]
  - Wrong technique in drug usage process [None]
  - Influenza like illness [Not Recovered/Not Resolved]
  - Hyperhidrosis [Not Recovered/Not Resolved]
  - Bone pain [Recovered/Resolved]
  - Injection site bruising [Not Recovered/Not Resolved]
  - Injection site rash [Not Recovered/Not Resolved]
  - Malaise [Not Recovered/Not Resolved]
  - Asthenia [None]
  - Mood swings [Not Recovered/Not Resolved]
  - Headache [Recovered/Resolved]
  - Asthenia [Recovered/Resolved]

NARRATIVE: CASE EVENT DATE: 201407
